FAERS Safety Report 6089051-1 (Version None)
Quarter: 2009Q1

REPORT INFORMATION
  Report Type: 
  Country: None (occurrence: None)
  Receive Date: 20090224
  Receipt Date: 20090212
  Transmission Date: 20090719
  Serious: Yes (Hospitalization)
  Sender: FDA-Public Use
  Company Number: B0557746A

PATIENT
  Age: 9 Year
  Sex: Male

DRUGS (4)
  1. LAMOTRIGINE [Suspect]
     Route: 065
  2. VALPROIC ACID [Suspect]
     Route: 065
  3. CLOBAZAM [Suspect]
     Route: 065
  4. ETHOSUXIMIDE [Suspect]
     Route: 065

REACTIONS (8)
  - ANGIOEDEMA [None]
  - BLISTER [None]
  - COMA [None]
  - DEPRESSED LEVEL OF CONSCIOUSNESS [None]
  - DRUG INTERACTION [None]
  - DRUG TOXICITY [None]
  - ERYTHEMA [None]
  - SWEAT GLAND DISORDER [None]
